FAERS Safety Report 21271289 (Version 1)
Quarter: 2022Q3

REPORT INFORMATION
  Report Type: Spontaneous
  Country: US (occurrence: US)
  Receive Date: 20220830
  Receipt Date: 20220830
  Transmission Date: 20221026
  Serious: Yes (Hospitalization)
  Sender: FDA-Public Use
  Company Number: US-GBT-015331

PATIENT
  Age: 49 Year
  Sex: Female

DRUGS (2)
  1. OXBRYTA [Suspect]
     Active Substance: VOXELOTOR
     Indication: Sickle cell anaemia with crisis
     Route: 048
     Dates: start: 20200306
  2. Red blood transfusions [Concomitant]
     Indication: Product used for unknown indication

REACTIONS (2)
  - Sickle cell anaemia with crisis [Unknown]
  - Off label use [Unknown]

NARRATIVE: CASE EVENT DATE: 20200306
